FAERS Safety Report 4498097-6 (Version None)
Quarter: 2004Q4

REPORT INFORMATION
  Report Type: 
  Country: None (occurrence: None)
  Receive Date: 20040927
  Receipt Date: 20040723
  Transmission Date: 20050328
  Serious: No
  Sender: FDA-Public Use
  Company Number: USA040773534

PATIENT
  Age: 7 Year
  Sex: Female

DRUGS (1)
  1. STRATTERA [Suspect]
     Indication: DISTURBANCE IN ATTENTION
     Dosage: 25 MG IN THE EVENING
     Dates: start: 20040713

REACTIONS (2)
  - NAUSEA [None]
  - PALLOR [None]
